FAERS Safety Report 4433814-2 (Version None)
Quarter: 2004Q3

REPORT INFORMATION
  Report Type: 
  Country: None (occurrence: None)
  Receive Date: 20040825
  Receipt Date: 20040811
  Transmission Date: 20050211
  Serious: Yes (Death)
  Sender: FDA-Public Use
  Company Number: MK200408-0127-1

PATIENT
  Age: 36 Year
  Sex: Female

DRUGS (2)
  1. ANAFRANIL [Suspect]
     Indication: PSYCHOTIC DISORDER
     Dosage: 75MG, DAILY
     Route: 048
     Dates: end: 19920423
  2. SOLIAN [Suspect]
     Dates: end: 19920423

REACTIONS (3)
  - PERICARDITIS [None]
  - SUDDEN DEATH [None]
  - VENTRICULAR ARRHYTHMIA [None]
